FAERS Safety Report 7678624-8 (Version None)
Quarter: 2011Q3

REPORT INFORMATION
  Report Type: 
  Country: None (occurrence: None)
  Receive Date: 20110811
  Receipt Date: 20110809
  Transmission Date: 20111222
  Serious: Yes (Hospitalization)
  Sender: FDA-Public Use
  Company Number: US-ABBOTT-11P-163-0838018-00

PATIENT
  Sex: Male
  Weight: 108.51 kg

DRUGS (11)
  1. HUMIRA [Suspect]
     Dates: start: 20110622
  2. PREDNISONE [Concomitant]
     Indication: PRODUCT USED FOR UNKNOWN INDICATION
     Dosage: 30 MG DAILY
  3. MULTI-VITAMIN [Concomitant]
     Indication: PRODUCT USED FOR UNKNOWN INDICATION
     Dosage: 1 TABLET DAILY
  4. HUMIRA [Suspect]
     Dates: start: 20110527
  5. LIALDA [Concomitant]
     Indication: PRODUCT USED FOR UNKNOWN INDICATION
     Dosage: 1.2 GM 4 TABS DAILY
  6. HUMIRA [Suspect]
     Indication: COLITIS ULCERATIVE
     Dates: start: 20110304
  7. FOLIC ACID [Concomitant]
     Indication: PRODUCT USED FOR UNKNOWN INDICATION
     Dosage: 1 MG DAILY
  8. LISINOPRIL HYDROCHLORTHIAZID [Concomitant]
     Indication: PRODUCT USED FOR UNKNOWN INDICATION
     Dosage: 10-12.5MG 1 TABLET DAILY
  9. RISAQUAD [Concomitant]
     Indication: PRODUCT USED FOR UNKNOWN INDICATION
     Dosage: 230 MG DAILY
  10. HUMIRA [Suspect]
     Dates: start: 20110621
  11. ROWASA [Concomitant]
     Indication: PRODUCT USED FOR UNKNOWN INDICATION
     Route: 054

REACTIONS (7)
  - RECTAL HAEMORRHAGE [None]
  - PROCTALGIA [None]
  - RASH [None]
  - HERPES ZOSTER [None]
  - COLITIS ULCERATIVE [None]
  - PYREXIA [None]
  - DISCOMFORT [None]
